FAERS Safety Report 17663311 (Version 1)
Quarter: 2020Q2

REPORT INFORMATION
  Report Type: Spontaneous
  Country: US (occurrence: US)
  Receive Date: 20200414
  Receipt Date: 20200414
  Transmission Date: 20200713
  Serious: No
  Sender: FDA-Public Use
  Company Number: US-ASTRAZENECA-2020SE37785

PATIENT
  Age: 371 Day
  Sex: Female

DRUGS (10)
  1. ACETAMINOPHEN. [Concomitant]
     Active Substance: ACETAMINOPHEN
     Indication: PAIN
     Dosage: 3.15 MLS(100 MG) EVERY 4 HRS AS NEEDED
     Route: 048
  2. IBUPROFEN. [Concomitant]
     Active Substance: IBUPROFEN
     Route: 048
  3. ZINC OXIDE. [Concomitant]
     Active Substance: ZINC OXIDE
     Dosage: APPLY 1 APPLICATION TOPICALLY TWO TIMES DAILY AS NEEDED
  4. SYNAGIS [Suspect]
     Active Substance: PALIVIZUMAB
     Indication: ANTIVIRAL PROPHYLAXIS
     Dosage: STRENGTH: 100 MG/ML, 50 MG/ML
     Route: 030
     Dates: start: 20200108
  5. FUROSEMIDE. [Concomitant]
     Active Substance: FUROSEMIDE
  6. SPIRONOLACTONE. [Concomitant]
     Active Substance: SPIRONOLACTONE
     Route: 048
  7. SPIRONOLACTONE. [Concomitant]
     Active Substance: SPIRONOLACTONE
     Route: 048
  8. FAMOTIDINE. [Concomitant]
     Active Substance: FAMOTIDINE
     Route: 048
  9. NYSTATIN. [Concomitant]
     Active Substance: NYSTATIN
     Dosage: TOPICALLY TWO TIMES DAILY
  10. ENALAPRIL MALEATE. [Concomitant]
     Active Substance: ENALAPRIL MALEATE
     Route: 048

REACTIONS (3)
  - Hypokalaemia [Recovered/Resolved]
  - Catheter site related reaction [Unknown]
  - Genital rash [Unknown]

NARRATIVE: CASE EVENT DATE: 20200302
